FAERS Safety Report 9512000 (Version 1)
Quarter: 2013Q1

REPORT INFORMATION
  Report Type: Spontaneous
  Country: US (occurrence: None)
  Receive Date: 20130305
  Receipt Date: 20130305
  Transmission Date: 20140127
  Serious: Yes (Other)
  Sender: FDA-Public Use
  Company Number: 163-21880-12102652

PATIENT
  Age: 66 Year
  Sex: Female

DRUGS (10)
  1. REVLIMID (LENALIDOMIDE) (25 MILLIGRAM, CAPSULE) [Suspect]
     Indication: PLASMA CELL MYELOMA
     Dosage: 25 MG, 1 IN 1 D, PO
     Route: 048
     Dates: start: 201007, end: 2010
  2. OXYCODONE (OXYCODONE) (UNKNOWN) (OXYCODONE) [Concomitant]
  3. FENTANYL (FENTANYL) (UNKNOWN) (FENTANYL) [Concomitant]
  4. LISINOPRIL (LISINOPRIL) (UNKNOWN) [Concomitant]
  5. DEXAMETHASONE (DEXAMETHASONE) (UNKNOWN) [Concomitant]
  6. OMEPRAZOLE (OMEPRAZOLE) (UNKNOWN) [Concomitant]
  7. FOLIC ACID (FOLIC ACID) (UNKNOWN) [Concomitant]
  8. VITAMIN D (ERGOCALCIFEROL) (UNKNOWN) [Concomitant]
  9. VITAMIN B 12 (VITAMIN B 12) (UNKNOWN) [Concomitant]
  10. STATIN (CHOLESTEROL- AND TRIGLYCERIDE REDUCERS) (UNKNOWN) [Concomitant]

REACTIONS (2)
  - Thrombocytopenia [None]
  - Neutropenia [None]
